FAERS Safety Report 19806891 (Version 1)
Quarter: 2021Q3

REPORT INFORMATION
  Report Type: Other
  Country: FR (occurrence: FR)
  Receive Date: 20210909
  Receipt Date: 20210909
  Transmission Date: 20211014
  Serious: Yes (Hospitalization)
  Sender: FDA-Public Use
  Company Number: FR-CELLTRION INC.-2021FR011974

PATIENT

DRUGS (6)
  1. OXYNORM [Suspect]
     Active Substance: OXYCODONE HYDROCHLORIDE
     Indication: PAIN
     Route: 048
  2. RITUXIMAB. [Suspect]
     Active Substance: RITUXIMAB
     Indication: GRANULOMATOSIS WITH POLYANGIITIS
     Dosage: DOSING DETAILS: 2 DOSAGE FORM
     Route: 041
     Dates: start: 20210609, end: 20210616
  3. BACTRIM [Suspect]
     Active Substance: SULFAMETHOXAZOLE\TRIMETHOPRIM
     Indication: GRANULOMATOSIS WITH POLYANGIITIS
     Dosage: DOSE: 800/160 MG, 2 DOSAGE FORM EVERY 1 DAYS
     Route: 048
     Dates: start: 202103
  4. CORTANCYL [Suspect]
     Active Substance: PREDNISONE
     Indication: GRANULOMATOSIS WITH POLYANGIITIS
     Dosage: 60 MG, 1 DAY
     Route: 048
     Dates: start: 202103
  5. COMIRNATY [Suspect]
     Active Substance: TOZINAMERAN
     Indication: COVID-19 IMMUNISATION
     Dosage: 1 DOSAGE FORM TOTAL
     Route: 030
     Dates: start: 20210521, end: 20210521
  6. PREVENAR [Suspect]
     Active Substance: PNEUMOCOCCAL 7-VALENT CONJUGATE VACCINE (DIPHTHERIA CRM197 PROTEIN)
     Indication: IMMUNISATION
     Dosage: 1 DOSAGE FORM TOTAL
     Route: 030
     Dates: start: 20210521, end: 20210521

REACTIONS (2)
  - Myocarditis [Recovering/Resolving]
  - Off label use [Unknown]

NARRATIVE: CASE EVENT DATE: 20210618
